FAERS Safety Report 16305323 (Version 3)
Quarter: 2020Q4

REPORT INFORMATION
  Report Type: Spontaneous
  Country: US (occurrence: US)
  Receive Date: 20190513
  Receipt Date: 20201204
  Transmission Date: 20210113
  Serious: Yes (Death, Other)
  Sender: FDA-Public Use
  Company Number: US-ASTRAZENECA-2019SE65622

PATIENT
  Sex: Male
  Weight: 71.7 kg

DRUGS (32)
  1. NITROSTAT [Concomitant]
     Active Substance: NITROGLYCERIN
  2. POTASSIUM [Concomitant]
     Active Substance: POTASSIUM
  3. VITAMIN D [Concomitant]
     Active Substance: VITAMIN D NOS
  4. ASPIRIN. [Concomitant]
     Active Substance: ASPIRIN
     Indication: PAIN
     Dates: start: 20111114, end: 2016
  5. COLACE [Concomitant]
     Active Substance: DOCUSATE SODIUM
  6. FUROSEMIDE. [Concomitant]
     Active Substance: FUROSEMIDE
  7. PREVACID [Suspect]
     Active Substance: LANSOPRAZOLE
     Indication: GASTROOESOPHAGEAL REFLUX DISEASE
     Route: 065
     Dates: start: 20020304, end: 20050329
  8. HYDRALAZINE [Concomitant]
     Active Substance: HYDRALAZINE HYDROCHLORIDE
  9. NEXIUM [Suspect]
     Active Substance: ESOMEPRAZOLE MAGNESIUM
     Indication: GASTROOESOPHAGEAL REFLUX DISEASE
     Route: 048
     Dates: start: 20010711, end: 20020304
  10. GLYBURIDE. [Concomitant]
     Active Substance: GLYBURIDE
     Indication: TYPE 2 DIABETES MELLITUS
     Dates: start: 20070728, end: 20090209
  11. FUROSEMIDE. [Concomitant]
     Active Substance: FUROSEMIDE
     Indication: RENAL DISORDER
     Dates: start: 20070428, end: 20070815
  12. HYDRALAZINE [Concomitant]
     Active Substance: HYDRALAZINE HYDROCHLORIDE
     Indication: HYPERTENSION
     Dates: start: 20081231, end: 20090130
  13. AMIODARONE [Concomitant]
     Active Substance: AMIODARONE
  14. HYDRALAZINE [Concomitant]
     Active Substance: HYDRALAZINE HYDROCHLORIDE
  15. MIRALAX [Concomitant]
     Active Substance: POLYETHYLENE GLYCOL 3350
  16. DEMADEX [Concomitant]
     Active Substance: TORSEMIDE
  17. BUMEX [Concomitant]
     Active Substance: BUMETANIDE
  18. PRILOSEC [Suspect]
     Active Substance: OMEPRAZOLE MAGNESIUM
     Indication: GASTROOESOPHAGEAL REFLUX DISEASE
     Route: 048
     Dates: start: 20160406
  19. CIPROFLOXACIN. [Concomitant]
     Active Substance: CIPROFLOXACIN
     Indication: INFECTION
     Dates: start: 20071114, end: 20081231
  20. AMARYL [Concomitant]
     Active Substance: GLIMEPIRIDE
  21. ALBUTEROL. [Concomitant]
     Active Substance: ALBUTEROL
  22. NEXIUM [Suspect]
     Active Substance: ESOMEPRAZOLE MAGNESIUM
     Indication: GASTROOESOPHAGEAL REFLUX DISEASE
     Route: 048
     Dates: start: 20110811
  23. LODINE [Concomitant]
     Active Substance: ETODOLAC
  24. LANTUS [Concomitant]
     Active Substance: INSULIN GLARGINE
  25. LISINOPRIL. [Concomitant]
     Active Substance: LISINOPRIL
  26. ATENOLOL. [Concomitant]
     Active Substance: ATENOLOL
  27. NIFEDIPINE. [Concomitant]
     Active Substance: NIFEDIPINE
  28. ISOSORBIDE. [Concomitant]
     Active Substance: ISOSORBIDE
  29. CEPHALEXIN. [Concomitant]
     Active Substance: CEPHALEXIN
     Indication: INFECTION
     Dates: start: 20060310, end: 20060410
  30. SODIUM BICARBONATE. [Concomitant]
     Active Substance: SODIUM BICARBONATE
  31. AMIODARONE [Concomitant]
     Active Substance: AMIODARONE
  32. INSULIN [Concomitant]
     Active Substance: INSULIN NOS

REACTIONS (8)
  - Hyperparathyroidism secondary [Unknown]
  - Renal failure [Unknown]
  - Nephrogenic anaemia [Unknown]
  - Acute kidney injury [Unknown]
  - Renal tubular necrosis [Unknown]
  - End stage renal disease [Fatal]
  - Azotaemia [Fatal]
  - Chronic kidney disease [Not Recovered/Not Resolved]
